FAERS Safety Report 12589322 (Version 2)
Quarter: 2019Q1

REPORT INFORMATION
  Report Type: Spontaneous
  Country: US (occurrence: US)
  Receive Date: 20160725
  Receipt Date: 20190131
  Transmission Date: 20190417
  Serious: No
  Sender: FDA-Public Use
  Company Number: US-JNJFOC-20160706247

PATIENT
  Sex: Male

DRUGS (2)
  1. MOTRIN [Suspect]
     Active Substance: IBUPROFEN
     Indication: PRODUCT USED FOR UNKNOWN INDICATION
     Dosage: 2 PILLS
     Route: 065
  2. MOTRIN [Suspect]
     Active Substance: IBUPROFEN
     Route: 065

REACTIONS (1)
  - Somnolence [Unknown]
